FAERS Safety Report 17474521 (Version 1)
Quarter: 2020Q1

REPORT INFORMATION
  Report Type: Spontaneous
  Country: US (occurrence: US)
  Receive Date: 20200228
  Receipt Date: 20200228
  Transmission Date: 20200409
  Serious: Yes (Hospitalization)
  Sender: FDA-Public Use
  Company Number: US-MALLINCKRODT-T202000852

PATIENT
  Sex: Male
  Weight: 91 kg

DRUGS (1)
  1. H.P. ACTHAR [Suspect]
     Active Substance: CORTICOTROPIN
     Indication: POLYMYOSITIS
     Dosage: 80 UNITS/1ML, TWO TIMES A WEEK
     Route: 058
     Dates: start: 201912

REACTIONS (2)
  - Dehydration [Unknown]
  - Product dose omission [Unknown]

NARRATIVE: CASE EVENT DATE: 2020
